FAERS Safety Report 6019728-5 (Version None)
Quarter: 2008Q4

REPORT INFORMATION
  Report Type: 
  Country: None (occurrence: None)
  Receive Date: 20081224
  Receipt Date: 20081212
  Transmission Date: 20090506
  Serious: Yes (Hospitalization, Other)
  Sender: FDA-Public Use
  Company Number: GB-PFIZER INC-2008151170

PATIENT

DRUGS (11)
  1. SILDENAFIL CITRATE [Suspect]
     Indication: PULMONARY HYPERTENSION
     Dosage: 40 MG, 3X/DAY
     Route: 048
     Dates: start: 20060113, end: 20081212
  2. EPOPROSTENOL [Suspect]
     Indication: PULMONARY ARTERIAL HYPERTENSION
     Dosage: UNK
     Route: 042
     Dates: start: 20010115
  3. WARFARIN [Concomitant]
     Route: 048
  4. SPIRONOLACTONE [Concomitant]
     Route: 048
  5. BUMETANIDE [Concomitant]
     Route: 048
  6. STEMETIL ^AVENTIS PHARMA^ [Concomitant]
     Route: 048
  7. NASONEX [Concomitant]
     Dates: start: 20051222
  8. FEXOFENADINE [Concomitant]
     Route: 048
     Dates: start: 20060607
  9. DRAPOLENE [Concomitant]
     Route: 061
     Dates: start: 20060904
  10. ALOE VERA JUICE [Concomitant]
     Route: 048
     Dates: start: 20060904
  11. SALBUTAMOL INHALER [Concomitant]
     Dates: start: 20061028

REACTIONS (4)
  - PERICARDIAL EFFUSION [None]
  - PULMONARY HYPERTENSION [None]
  - RIGHT VENTRICULAR FAILURE [None]
  - WEIGHT DECREASED [None]
